FAERS Safety Report 18283247 (Version 1)
Quarter: 2020Q3

REPORT INFORMATION
  Report Type: Report from Study
  Country: DE (occurrence: DE)
  Receive Date: 20200918
  Receipt Date: 20200918
  Transmission Date: 20201103
  Serious: Yes (Other)
  Sender: FDA-Public Use
  Company Number: DE-SA-2020SA250324

PATIENT

DRUGS (7)
  1. BORTEZOMIB. [Suspect]
     Active Substance: BORTEZOMIB
     Indication: PLASMA CELL MYELOMA
     Dosage: 1.3 MG/M2, OTHER (DAY 1, 4, 8, 11, 22, 25, 29 AND 32)
     Route: 058
     Dates: start: 20200908, end: 20200908
  2. LENALIDOMIDE. [Suspect]
     Active Substance: LENALIDOMIDE
     Indication: PLASMA CELL MYELOMA
     Dosage: 25 MG, QD
     Route: 048
  3. ACYCLOVIR [ACICLOVIR SODIUM] [Concomitant]
     Active Substance: ACYCLOVIR
     Indication: VIRAL INFECTION
     Dosage: UNK UNK, BID, DATE OF LAST ADMINISTRATION PRIOR TO SAE ONSET: 08?SEP?2020
     Route: 065
     Dates: start: 20200908
  4. COTRIM FORTE [Concomitant]
     Active Substance: SULFAMETHOXAZOLE\TRIMETHOPRIM
     Indication: INFECTION
     Dosage: UNK UNK, QD, UNK UNK, BID, DATE OF LAST ADMINISTRATION PRIOR TO SAE ONSET: 08?SEP?2020
     Route: 065
     Dates: start: 20200908
  5. ASPIRIN. [Concomitant]
     Active Substance: ASPIRIN
     Indication: PROPHYLAXIS
     Dosage: UNK UNK, QD, UNK UNK, BID, DATE OF LAST ADMINISTRATION PRIOR TO SAE ONSET: 08?SEP?2020
     Route: 065
     Dates: start: 20200908, end: 20200908
  6. ISATUXIMAB [Suspect]
     Active Substance: ISATUXIMAB
     Indication: PLASMA CELL MYELOMA
     Dosage: 10 MG/KG, QW
     Route: 042
     Dates: start: 20200908, end: 20200908
  7. DEXAMETHASONE. [Suspect]
     Active Substance: DEXAMETHASONE
     Indication: PLASMA CELL MYELOMA
     Dosage: 20 MG, QW
     Route: 042
     Dates: start: 20200908, end: 20200908

REACTIONS (1)
  - Infusion related hypersensitivity reaction [Recovered/Resolved]

NARRATIVE: CASE EVENT DATE: 20200908
